FAERS Safety Report 4563663-6 (Version None)
Quarter: 2005Q1

REPORT INFORMATION
  Report Type: 
  Country: None (occurrence: None)
  Receive Date: 20050124
  Receipt Date: 20050107
  Transmission Date: 20050727
  Serious: Yes (Other)
  Sender: FDA-Public Use
  Company Number: 200500197

PATIENT
  Sex: Female

DRUGS (2)
  1. BOTOX [Suspect]
     Indication: DYSTONIA
  2. TEGRETOL [Concomitant]

REACTIONS (3)
  - CONDITION AGGRAVATED [None]
  - CONVULSION [None]
  - INFLUENZA LIKE ILLNESS [None]
